FAERS Safety Report 10271850 (Version 1)
Quarter: 2014Q3

REPORT INFORMATION
  Report Type: Spontaneous
  Country: ES (occurrence: ES)
  Receive Date: 20140702
  Receipt Date: 20140702
  Transmission Date: 20150326
  Serious: Yes (Death, Other)
  Sender: FDA-Public Use
  Company Number: PHHY2014ES077892

PATIENT
  Age: 74 Year
  Sex: Female

DRUGS (13)
  1. MYCOPHENOLATE MOFETIL. [Suspect]
     Active Substance: MYCOPHENOLATE MOFETIL
     Indication: MYASTHENIA GRAVIS
  2. MORPHINE [Concomitant]
     Active Substance: MORPHINE
     Indication: DYSPNOEA
     Dosage: 15 MG/DAY
     Route: 042
  3. MORPHINE [Concomitant]
     Active Substance: MORPHINE
     Dosage: 25 MG/DAY
     Route: 042
  4. OCTREOTIDE [Suspect]
     Active Substance: OCTREOTIDE
     Indication: MYASTHENIA GRAVIS
     Dosage: 100 UG, EVERY 6 HOURS
     Route: 058
  5. RITUXIMAB [Suspect]
     Active Substance: RITUXIMAB
     Indication: MYASTHENIA GRAVIS
  6. TACROLIMUS. [Suspect]
     Active Substance: TACROLIMUS
     Indication: MYASTHENIA GRAVIS
  7. ANTICHOLINESTERASES [Suspect]
     Active Substance: UNSPECIFIED INGREDIENT
  8. MIDAZOLAM [Concomitant]
     Active Substance: MIDAZOLAM\MIDAZOLAM HYDROCHLORIDE
     Indication: MYASTHENIA GRAVIS
     Dosage: 5 MG/DAY
     Route: 042
  9. OCTREOTIDE [Suspect]
     Active Substance: OCTREOTIDE
     Indication: OFF LABEL USE
     Dosage: 200 UG
  10. AZATHIOPRINE. [Suspect]
     Active Substance: AZATHIOPRINE
     Indication: MYASTHENIA GRAVIS
  11. CORTICOSTEROIDS [Suspect]
     Active Substance: CORTICOSTEROID NOS
  12. IMMUNOGLOBULINS [Suspect]
     Active Substance: HUMAN IMMUNOGLOBULIN G
     Indication: MYASTHENIA GRAVIS
     Route: 042
  13. HALOPERIDOL. [Concomitant]
     Active Substance: HALOPERIDOL
     Indication: MYASTHENIA GRAVIS
     Dosage: 1 MG/DAY
     Route: 042

REACTIONS (13)
  - Respiratory failure [None]
  - Cardiac failure [None]
  - Pulmonary embolism [None]
  - Asthma [None]
  - Mitral valve incompetence [None]
  - Pneumonia [None]
  - Sepsis [None]
  - Urinary tract infection [None]
  - Disseminated tuberculosis [Unknown]
  - Influenza [None]
  - Quality of life decreased [None]
  - Death [Fatal]
  - Therapeutic response decreased [Unknown]
